FAERS Safety Report 6912921-6 (Version None)
Quarter: 2010Q3

REPORT INFORMATION
  Report Type: 
  Country: None (occurrence: None)
  Receive Date: 20100806
  Receipt Date: 20090403
  Transmission Date: 20110219
  Serious: No
  Sender: FDA-Public Use
  Company Number: US-PFIZER INC-2009193350

PATIENT
  Age: 77 Year
  Sex: Male

DRUGS (1)
  1. GLIPIZIDE [Suspect]
     Dosage: UNK
     Dates: start: 20081007

REACTIONS (3)
  - ABDOMINAL DISCOMFORT [None]
  - ERUCTATION [None]
  - GASTROOESOPHAGEAL REFLUX DISEASE [None]
